FAERS Safety Report 24534607 (Version 1)
Quarter: 2024Q4

REPORT INFORMATION
  Report Type: Spontaneous
  Country: FR (occurrence: FR)
  Receive Date: 20241022
  Receipt Date: 20241022
  Transmission Date: 20250115
  Serious: Yes (Other)
  Sender: MYLAN
  Company Number: None

PATIENT
  Age: 1 Month
  Sex: Female

DRUGS (4)
  1. BISOPROLOL [Suspect]
     Active Substance: BISOPROLOL\BISOPROLOL FUMARATE
     Indication: Myocardial infarction
     Dosage: 3.75 MILLIGRAM, QD
     Route: 064
     Dates: end: 20240305
  2. RAMIPRIL [Suspect]
     Active Substance: RAMIPRIL
     Indication: Myocardial infarction
     Dosage: 2.5 MILLIGRAM, QD
     Route: 064
     Dates: end: 20240209
  3. ATORVASTATIN [Suspect]
     Active Substance: ATORVASTATIN
     Indication: Myocardial infarction
     Dosage: 80 MILLIGRAM, QD
     Route: 064
     Dates: end: 20240209
  4. KARDEGIC [Suspect]
     Active Substance: ASPIRIN DL-LYSINE
     Indication: Myocardial infarction
     Dosage: 75 MILLIGRAM, QD
     Route: 064
     Dates: end: 20240305

REACTIONS (4)
  - Premature baby [Recovered/Resolved]
  - Cardiac murmur [Not Recovered/Not Resolved]
  - Pulmonary valve stenosis [Not Recovered/Not Resolved]
  - Foetal exposure during pregnancy [Recovered/Resolved]

NARRATIVE: CASE EVENT DATE: 20230714
